FAERS Safety Report 25840415 (Version 1)
Quarter: 2025Q3

REPORT INFORMATION
  Report Type: Other
  Country: JP (occurrence: JP)
  Receive Date: 20250924
  Receipt Date: 20250924
  Transmission Date: 20251020
  Serious: Yes (Death, Hospitalization, Other)
  Sender: ANI
  Company Number: JP-ANIPHARMA-030625

PATIENT
  Sex: Male

DRUGS (12)
  1. CYCLOPHOSPHAMIDE [Suspect]
     Active Substance: CYCLOPHOSPHAMIDE
     Indication: Post transplant lymphoproliferative disorder
  2. RITUXIMAB [Concomitant]
     Active Substance: RITUXIMAB
     Indication: Post transplant lymphoproliferative disorder
  3. DOXORUBICIN [Concomitant]
     Active Substance: DOXORUBICIN
     Indication: Post transplant lymphoproliferative disorder
  4. VINCRISTINE [Concomitant]
     Active Substance: VINCRISTINE
     Indication: Post transplant lymphoproliferative disorder
  5. PREDNISOLONE [Concomitant]
     Active Substance: PREDNISOLONE
     Indication: Post transplant lymphoproliferative disorder
  6. NIFEDIPINE [Concomitant]
     Active Substance: NIFEDIPINE
     Indication: Product used for unknown indication
  7. METHOTREXATE [Concomitant]
     Active Substance: METHOTREXATE
     Indication: Post transplant lymphoproliferative disorder
  8. MIRTAZAPINE [Concomitant]
     Active Substance: MIRTAZAPINE
     Indication: Product used for unknown indication
  9. RISPERIDONE [Concomitant]
     Active Substance: RISPERIDONE
     Indication: Product used for unknown indication
  10. ETOPOSIDE [Concomitant]
     Active Substance: ETOPOSIDE
     Indication: Post transplant lymphoproliferative disorder
  11. PROCARBAZINE [Concomitant]
     Active Substance: PROCARBAZINE
     Indication: Post transplant lymphoproliferative disorder
  12. PREDNISOLONE [Concomitant]
     Active Substance: PREDNISOLONE
     Indication: Post transplant lymphoproliferative disorder

REACTIONS (2)
  - JC virus infection [Unknown]
  - Progressive multifocal leukoencephalopathy [Fatal]
